FAERS Safety Report 4872821-2 (Version None)
Quarter: 2005Q4

REPORT INFORMATION
  Report Type: 
  Country: None (occurrence: None)
  Receive Date: 20051201
  Receipt Date: 20050705
  Transmission Date: 20060501
  Serious: No
  Sender: FDA-Public Use
  Company Number: 2005PV000337

PATIENT
  Age: 63 Year
  Sex: Female
  Weight: 136.0791 kg

DRUGS (10)
  1. BYETTA [Suspect]
     Indication: DIABETES MELLITUS NON-INSULIN-DEPENDENT
     Dosage: SEE IMAGE
     Route: 058
     Dates: start: 20050701, end: 20050816
  2. BYETTA [Suspect]
     Indication: DIABETES MELLITUS NON-INSULIN-DEPENDENT
     Dosage: SEE IMAGE
     Route: 058
     Dates: start: 20050817
  3. GLUCOPHAGE [Concomitant]
  4. AMARYL [Concomitant]
  5. WELLBUTRIN SR [Concomitant]
  6. PRINZIDE [Concomitant]
  7. CARDIZEM [Concomitant]
  8. ZETIA [Concomitant]
  9. PRAVACHOL [Concomitant]
  10. GLUCOSAMINE/CHONDROITIN [Concomitant]

REACTIONS (7)
  - ARTHRALGIA [None]
  - BLOOD GLUCOSE INCREASED [None]
  - CONSTIPATION [None]
  - DECREASED APPETITE [None]
  - DIARRHOEA [None]
  - DRUG EFFECT DECREASED [None]
  - INCREASED APPETITE [None]
